FAERS Safety Report 5068753-X (Version None)
Quarter: 2006Q3

REPORT INFORMATION
  Report Type: 
  Country: None (occurrence: None)
  Receive Date: 20060802
  Receipt Date: 20060316
  Transmission Date: 20061208
  Serious: No
  Sender: FDA-Public Use
  Company Number: US-BRISTOL-MYERS SQUIBB COMPANY-13317482

PATIENT
  Age: 65 Year
  Sex: Male
  Weight: 77 kg

DRUGS (6)
  1. COUMADIN [Suspect]
     Indication: ATRIAL FIBRILLATION
     Dates: start: 20040101
  2. LOPRESSOR [Concomitant]
  3. LIPITOR [Concomitant]
  4. FOLIC ACID [Concomitant]
  5. ASPIRIN [Concomitant]
  6. VASOTEC [Concomitant]

REACTIONS (1)
  - INTERNATIONAL NORMALISED RATIO INCREASED [None]
